FAERS Safety Report 8995621 (Version 1)
Quarter: 2013Q1

REPORT INFORMATION
  Report Type: Spontaneous
  Country: US (occurrence: US)
  Receive Date: 20130103
  Receipt Date: 20130103
  Transmission Date: 20140127
  Serious: No
  Sender: FDA-Public Use
  Company Number: US-ABBOTT-12P-163-0983899-00

PATIENT
  Age: 58 Year
  Sex: Female
  Weight: 58.57 kg

DRUGS (8)
  1. SYNTHROID [Suspect]
     Indication: THYROID OPERATION
     Route: 048
     Dates: start: 2006
  2. SYNTHROID [Suspect]
     Indication: HYPOTHYROIDISM
  3. CITALOPRAM [Concomitant]
     Indication: HOT FLUSH
  4. BENADRYL [Concomitant]
     Indication: PRURITUS
     Dates: start: 2006
  5. BENADRYL [Concomitant]
     Indication: URTICARIA
  6. BENADRYL [Concomitant]
     Indication: ERYTHEMA
  7. BENADRYL [Concomitant]
     Indication: UNEVALUABLE EVENT
  8. BENADRYL [Concomitant]
     Indication: RHINORRHOEA

REACTIONS (5)
  - Rhinorrhoea [Not Recovered/Not Resolved]
  - Pruritus [Not Recovered/Not Resolved]
  - Urticaria [Not Recovered/Not Resolved]
  - Erythema [Not Recovered/Not Resolved]
  - Unevaluable event [Not Recovered/Not Resolved]
